FAERS Safety Report 17161866 (Version 1)
Quarter: 2019Q4

REPORT INFORMATION
  Report Type: Spontaneous
  Country: US (occurrence: US)
  Receive Date: 20191217
  Receipt Date: 20191217
  Transmission Date: 20200122
  Serious: Yes (Death, Life-Threatening, Hospitalization)
  Sender: FDA-Public Use
  Company Number: US-TEVA-2019-US-1142062

PATIENT
  Sex: Female

DRUGS (2)
  1. AMIODARONE [Suspect]
     Active Substance: AMIODARONE
     Indication: ATRIAL FIBRILLATION
     Route: 065
     Dates: start: 201110
  2. AMIODARONE [Suspect]
     Active Substance: AMIODARONE
     Indication: ATRIAL FIBRILLATION
     Route: 065
     Dates: start: 201110

REACTIONS (11)
  - Pulmonary fibrosis [Fatal]
  - Cough [Fatal]
  - Tremor [Fatal]
  - Off label use [Unknown]
  - Oedema [Fatal]
  - Dyspnoea [Fatal]
  - Wheezing [Fatal]
  - Respiratory failure [Fatal]
  - Fatigue [Fatal]
  - Dizziness [Fatal]
  - Asthenia [Fatal]

NARRATIVE: CASE EVENT DATE: 201505
